FAERS Safety Report 16223816 (Version 3)
Quarter: 2019Q2

REPORT INFORMATION
  Report Type: Spontaneous
  Country: MX (occurrence: MX)
  Receive Date: 20190422
  Receipt Date: 20190503
  Transmission Date: 20190711
  Serious: Yes (Hospitalization, Other)
  Sender: FDA-Public Use
  Company Number: MX-PFIZER INC-2019166891

PATIENT
  Age: 82 Year
  Sex: Male

DRUGS (10)
  1. CLEXANE [Concomitant]
     Active Substance: ENOXAPARIN SODIUM
     Dosage: UNK
     Dates: start: 201807, end: 201809
  2. LYRICA [Suspect]
     Active Substance: PREGABALIN
     Indication: BACK PAIN
     Dosage: 50 MG, 1X/DAY
     Dates: start: 201807
  3. LIPITOR [Suspect]
     Active Substance: ATORVASTATIN CALCIUM
     Indication: BLOOD CHOLESTEROL ABNORMAL
     Dosage: 20 MG, 1X/DAY
     Dates: start: 201807
  4. DUOALMETEC [Concomitant]
     Active Substance: AMLODIPINE BESYLATE\OLMESARTAN MEDOXOMIL
     Dosage: UNK
     Dates: start: 201807, end: 201808
  5. ASPIRINA [Concomitant]
     Active Substance: ASPIRIN
     Dosage: UNK
     Dates: start: 201807
  6. LEXAPRO [Concomitant]
     Active Substance: ESCITALOPRAM OXALATE
     Dosage: UNK
     Dates: start: 201807
  7. HUMYLUB OFTENO [Concomitant]
     Dosage: UNK
     Dates: start: 201807
  8. INDAFLEX [INDAPAMIDE] [Concomitant]
     Dosage: UNK
     Route: 003
     Dates: start: 201807
  9. PLAVIX [Concomitant]
     Active Substance: CLOPIDOGREL BISULFATE
     Dosage: UNK
     Dates: start: 201807
  10. ZYPREXA ZYDIS [Concomitant]
     Active Substance: OLANZAPINE
     Dosage: UNK
     Dates: start: 201807

REACTIONS (1)
  - Cerebral infarction [Recovered/Resolved]

NARRATIVE: CASE EVENT DATE: 20180710
